FAERS Safety Report 6216620-8 (Version None)
Quarter: 2009Q2

REPORT INFORMATION
  Report Type: 
  Country: None (occurrence: None)
  Receive Date: 20090605
  Receipt Date: 20090528
  Transmission Date: 20091009
  Serious: Yes (Other)
  Sender: FDA-Public Use
  Company Number: PHHY2009BR21119

PATIENT
  Sex: Female

DRUGS (9)
  1. EXELON [Suspect]
     Indication: DEMENTIA ALZHEIMER'S TYPE
     Dosage: 2 CAPSULES DAILY
     Route: 048
     Dates: end: 20090101
  2. EBIXA [Concomitant]
     Dosage: 1 TABLET DAILY
     Route: 048
     Dates: end: 20090101
  3. OMEPRAZOLE [Concomitant]
     Route: 048
  4. DEPAKENE [Concomitant]
     Indication: CONVULSION
     Dosage: 12 ML DAILY
     Route: 048
  5. LOSARTAN POTASSIUM [Concomitant]
     Indication: HYPERTENSION
     Dosage: 2 TABLETS DAILY
     Route: 048
  6. ASPIRIN [Concomitant]
     Indication: ANTICOAGULANT THERAPY
     Route: 048
  7. ENOXAPARIN SODIUM [Concomitant]
     Indication: THROMBOSIS
     Dosage: 1 APPLICATION DAILY
     Route: 058
  8. HUMECTOL [Concomitant]
     Dosage: 2 TABLETS DAILY
     Route: 048
  9. GUTALAX [Concomitant]
     Indication: CONSTIPATION
     Dosage: 20 DROPS DAILY
     Route: 048

REACTIONS (3)
  - BREAST CANCER METASTATIC [None]
  - MASTECTOMY [None]
  - METASTASES TO BONE [None]
